FAERS Safety Report 4277403-1 (Version None)
Quarter: 2004Q1

REPORT INFORMATION
  Report Type: 
  Country: None (occurrence: None)
  Receive Date: 20040122
  Receipt Date: 20040108
  Transmission Date: 20041129
  Serious: Yes (Death)
  Sender: FDA-Public Use
  Company Number: US-GLAXOSMITHKLINE-A0492017A

PATIENT

DRUGS (1)
  1. ADVAIR DISKUS 250/50 [Suspect]
     Route: 055

REACTIONS (1)
  - DEATH [None]
